FAERS Safety Report 13588224 (Version 1)
Quarter: 2017Q2

REPORT INFORMATION
  Report Type: Spontaneous
  Country: US (occurrence: US)
  Receive Date: 20170528
  Receipt Date: 20170528
  Transmission Date: 20170830
  Serious: No
  Sender: FDA-Public Use
  Company Number: US-CELGENEUS-USA-20170504107

PATIENT
  Sex: Female

DRUGS (1)
  1. OTEZLA [Suspect]
     Active Substance: APREMILAST
     Indication: PSORIASIS
     Dosage: 60 MILLIGRAM
     Route: 048
     Dates: start: 20170426

REACTIONS (6)
  - Peripheral swelling [Unknown]
  - Dry skin [Unknown]
  - Arthralgia [Unknown]
  - Skin discolouration [Unknown]
  - Inflammation [Unknown]
  - Onycholysis [Unknown]

NARRATIVE: CASE EVENT DATE: 2017
